FAERS Safety Report 8265965-9 (Version None)
Quarter: 2012Q2

REPORT INFORMATION
  Report Type: 
  Country: None (occurrence: None)
  Receive Date: 20120406
  Receipt Date: 20120401
  Transmission Date: 20120825
  Serious: Yes (Life-Threatening, Hospitalization)
  Sender: FDA-Public Use
  Company Number: US-BRISTOL-MYERS SQUIBB COMPANY-16495335

PATIENT

DRUGS (1)
  1. REYATAZ [Suspect]

REACTIONS (2)
  - ROAD TRAFFIC ACCIDENT [None]
  - BRAIN OEDEMA [None]
